FAERS Safety Report 10900696 (Version 6)
Quarter: 2015Q2

REPORT INFORMATION
  Report Type: Report from Study
  Country: ZA (occurrence: ZA)
  Receive Date: 20150310
  Receipt Date: 20150623
  Transmission Date: 20150821
  Serious: Yes (Other)
  Sender: FDA-Public Use
  Company Number: ZA-JNJFOC-20150304684

PATIENT
  Age: 42 Year
  Sex: Female
  Weight: 39.8 kg

DRUGS (12)
  1. BEDAQUILINE [Suspect]
     Active Substance: BEDAQUILINE
     Indication: TUBERCULOSIS
     Dosage: FIRST DOSE AT 10:15
     Route: 048
     Dates: start: 20150127, end: 20150220
  2. PYRAZINAMIDE. [Suspect]
     Active Substance: PYRAZINAMIDE
     Indication: TUBERCULOSIS
     Route: 065
     Dates: start: 20150127, end: 20150220
  3. DOXYCYCLINE. [Concomitant]
     Active Substance: DOXYCYCLINE
     Indication: PELVIC INFLAMMATORY DISEASE
     Route: 048
     Dates: start: 20150121
  4. LOSEC [Concomitant]
     Active Substance: OMEPRAZOLE
     Indication: GASTRITIS
     Route: 048
     Dates: start: 20150204
  5. MYDRIACYL [Concomitant]
     Active Substance: TROPICAMIDE
     Indication: PUPIL DILATION PROCEDURE
     Route: 061
     Dates: start: 20150121, end: 20150121
  6. PANADO [Concomitant]
     Active Substance: ACETAMINOPHEN
     Indication: PAIN
     Route: 048
     Dates: start: 20150115
  7. CEFIXIME. [Concomitant]
     Active Substance: CEFIXIME
     Indication: PELVIC INFLAMMATORY DISEASE
     Route: 048
     Dates: start: 20150121, end: 20150121
  8. FLAGYL [Concomitant]
     Active Substance: METRONIDAZOLE\METRONIDAZOLE HYDROCHLORIDE
     Indication: PELVIC INFLAMMATORY DISEASE
     Route: 048
     Dates: start: 20150121
  9. PA-824 [Suspect]
     Active Substance: PRETOMANID
     Indication: TUBERCULOSIS
     Route: 065
     Dates: start: 20150127, end: 20150220
  10. MOXIFLOXACIN [Suspect]
     Active Substance: MOXIFLOXACIN
     Indication: TUBERCULOSIS
     Route: 065
     Dates: start: 20150127, end: 20150220
  11. TROPICAMIDE. [Concomitant]
     Active Substance: TROPICAMIDE
     Indication: MYDRIASIS
     Route: 061
     Dates: start: 20150121, end: 20150121
  12. DEPO-PROVERA [Concomitant]
     Active Substance: MEDROXYPROGESTERONE ACETATE
     Indication: CONTRACEPTION
     Route: 030
     Dates: start: 20150121, end: 20150121

REACTIONS (1)
  - Hepatitis [Recovered/Resolved]

NARRATIVE: CASE EVENT DATE: 20150216
